FAERS Safety Report 21989008 (Version 1)
Quarter: 2023Q1

REPORT INFORMATION
  Report Type: Spontaneous
  Country: US (occurrence: None)
  Receive Date: 20230214
  Receipt Date: 20230214
  Transmission Date: 20230418
  Serious: Yes (Other)
  Sender: FDA-Public Use
  Company Number: US-ROCHE-3281135

PATIENT
  Age: 40 Year
  Sex: Female

DRUGS (9)
  1. LUPKYNIS [Suspect]
     Active Substance: VOCLOSPORIN
     Indication: Glomerulonephropathy
     Route: 048
     Dates: start: 202108
  2. LUPKYNIS [Suspect]
     Active Substance: VOCLOSPORIN
     Indication: Lupus nephritis
     Route: 048
     Dates: start: 20211101, end: 20211126
  3. LUPKYNIS [Suspect]
     Active Substance: VOCLOSPORIN
     Route: 048
     Dates: start: 20211129
  4. LUPKYNIS [Suspect]
     Active Substance: VOCLOSPORIN
     Route: 048
     Dates: start: 20211102
  5. CELLCEPT [Suspect]
     Active Substance: MYCOPHENOLATE MOFETIL
     Indication: Lupus nephritis
     Route: 065
  6. CELLCEPT [Suspect]
     Active Substance: MYCOPHENOLATE MOFETIL
     Route: 065
  7. ROSUVASTATIN [Concomitant]
     Active Substance: ROSUVASTATIN
     Route: 065
  8. LAXIS [Concomitant]
  9. WELLBUTRIN [Concomitant]
     Active Substance: BUPROPION HYDROCHLORIDE
     Route: 065

REACTIONS (23)
  - Pollakiuria [Unknown]
  - Asthenia [Unknown]
  - Dyspnoea [Unknown]
  - Aspartate aminotransferase increased [Unknown]
  - Nasal ulcer [Unknown]
  - Depression [Unknown]
  - Pain in extremity [Unknown]
  - Fluid retention [Unknown]
  - Swelling face [Unknown]
  - Joint swelling [Unknown]
  - Dermatitis contact [Unknown]
  - Hidradenitis [Unknown]
  - Inflammation [Unknown]
  - Blood pressure increased [Unknown]
  - Diarrhoea [Unknown]
  - Fatigue [Unknown]
  - Illness [Unknown]
  - Product dose omission issue [Unknown]
  - Product packaging difficult to open [Unknown]
  - Off label use [Unknown]
  - Anxiety [Unknown]
  - Cutaneous lupus erythematosus [Unknown]
  - Generalised oedema [Unknown]

NARRATIVE: CASE EVENT DATE: 20210801
